FAERS Safety Report 8726907 (Version 2)
Quarter: 2015Q2

REPORT INFORMATION
  Report Type: Report from Study
  Country: US (occurrence: US)
  Receive Date: 20120816
  Receipt Date: 20150406
  Transmission Date: 20150821
  Serious: Yes (Hospitalization)
  Sender: FDA-Public Use
  Company Number: US-ROCHE-1100698

PATIENT
  Sex: Male

DRUGS (8)
  1. VALIUM [Concomitant]
     Active Substance: DIAZEPAM
     Route: 042
  2. NITRO SPRAY [Concomitant]
  3. ASA [Concomitant]
     Active Substance: ASPIRIN
  4. HEPARIN [Concomitant]
     Active Substance: HEPARIN SODIUM
     Dosage: 1000 MICRON/ML
     Route: 065
  5. MORPHINE SULFATE. [Concomitant]
     Active Substance: MORPHINE SULFATE
     Route: 042
  6. ACTIVASE [Suspect]
     Active Substance: ALTEPLASE
     Indication: ACUTE MYOCARDIAL INFARCTION
     Route: 040
  7. HEPARIN [Concomitant]
     Active Substance: HEPARIN SODIUM
     Dosage: 1500 CC IVP
     Route: 040
  8. NITRO INFUSION [Concomitant]
     Route: 065

REACTIONS (4)
  - Dizziness [Unknown]
  - Paraesthesia [Unknown]
  - Chest pain [Unknown]
  - Pain in extremity [Unknown]
